FAERS Safety Report 4356555-9 (Version None)
Quarter: 2004Q2

REPORT INFORMATION
  Report Type: 
  Country: None (occurrence: None)
  Receive Date: 20040506
  Receipt Date: 20040427
  Transmission Date: 20050107
  Serious: Yes (Other)
  Sender: FDA-Public Use
  Company Number: 2004-04-1631

PATIENT
  Age: 4 Year
  Sex: Male
  Weight: 18 kg

DRUGS (4)
  1. AERIUS (DESLORATADINE) SYRUP 'LIKE CLARINEX' [Suspect]
     Indication: RHINITIS ALLERGIC
     Dosage: 2.5MG Q DAY* ORAL
     Route: 048
     Dates: start: 20040302, end: 20040302
  2. AERIUS (DESLORATADINE) SYRUP 'LIKE CLARINEX' [Suspect]
     Indication: RHINITIS ALLERGIC
     Dosage: 2.5MG Q DAY* ORAL
     Route: 048
     Dates: start: 20040302, end: 20040316
  3. AERIUS (DESLORATADINE) SYRUP 'LIKE CLARINEX' [Suspect]
     Indication: RHINITIS ALLERGIC
     Dosage: 2.5MG Q DAY* ORAL
     Route: 048
     Dates: start: 20040316, end: 20040316
  4. CEFPROZIL SYRUP [Concomitant]

REACTIONS (5)
  - AGITATION [None]
  - COUGH [None]
  - DYSPNOEA [None]
  - INSOMNIA [None]
  - WHEEZING [None]
